FAERS Safety Report 8010546-5 (Version None)
Quarter: 2011Q4

REPORT INFORMATION
  Report Type: 
  Country: None (occurrence: None)
  Receive Date: 20111123
  Receipt Date: 20110816
  Transmission Date: 20120403
  Serious: No
  Sender: FDA-Public Use
  Company Number: 333682

PATIENT
  Age: 47 Year
  Sex: Female

DRUGS (6)
  1. PREMARIN [Concomitant]
  2. VICTOZA [Suspect]
     Indication: TYPE 2 DIABETES MELLITUS
     Dosage: 1.2 MG, QD, SUBCUTANEOUS
     Route: 058
     Dates: start: 20110301, end: 20110802
  3. ZOFRAN /00955301/ (ONDANSETRON) [Concomitant]
  4. JANUMET [Concomitant]
  5. PREMARIN [Concomitant]
  6. FENARDIN (FENOFIBRATE) [Concomitant]

REACTIONS (1)
  - THYROID NEOPLASM [None]
